FAERS Safety Report 13143381 (Version 2)
Quarter: 2017Q1

REPORT INFORMATION
  Report Type: Spontaneous
  Country: ES (occurrence: ES)
  Receive Date: 20170124
  Receipt Date: 20170125
  Transmission Date: 20170428
  Serious: Yes (Hospitalization, Other)
  Sender: FDA-Public Use
  Company Number: ES-PFIZER INC-2017027459

PATIENT
  Age: 71 Year
  Sex: Female

DRUGS (11)
  1. ZEBINIX [Interacting]
     Active Substance: ESLICARBAZEPINE ACETATE
     Indication: TRIGEMINAL NEURALGIA
     Dosage: 600 MG, 2X/DAY
     Route: 048
     Dates: start: 20160908, end: 20161201
  2. DEPRELIO [Concomitant]
     Dosage: 25 MG, 2X/DAY
     Route: 048
  3. LYRICA [Suspect]
     Active Substance: PREGABALIN
     Dosage: 75 MG, 3X/DAY
     Route: 048
     Dates: start: 20160908
  4. ENALAPRIL DURBAN [Concomitant]
     Dosage: 10 MG, 1X/DAY
     Route: 048
     Dates: end: 20161130
  5. METAMIZOL NORMON [Concomitant]
     Indication: PAIN
     Dosage: UNK, AS NEEDED
     Route: 048
     Dates: start: 20160908
  6. CARVEDILOL NORMON [Interacting]
     Active Substance: CARVEDILOL
     Dosage: UNK, DAILY
     Route: 048
     Dates: end: 20161130
  7. FLUOXETINE [Interacting]
     Active Substance: FLUOXETINE HYDROCHLORIDE
     Dosage: 20 MG, 1X/DAY
     Route: 048
     Dates: end: 20161201
  8. VESICARE [Concomitant]
     Active Substance: SOLIFENACIN SUCCINATE
     Dosage: 5 MG, 1X/DAY
     Route: 048
     Dates: end: 20161124
  9. SEGURIL [Concomitant]
     Active Substance: FUROSEMIDE
     Dosage: 20 MG, 4X/DAY
     Route: 042
     Dates: start: 20161124, end: 20161130
  10. AMLODIPINO NORMON [Concomitant]
     Dosage: 5 MG, 1X/DAY
     Route: 048
     Dates: start: 20160908, end: 20161130
  11. PARACETAMOL KERN PHARMA [Concomitant]
     Indication: PAIN
     Dosage: 1000 MG, 3X/DAY
     Route: 048

REACTIONS (8)
  - Drug interaction [Recovering/Resolving]
  - Hyponatraemia [Recovered/Resolved]
  - Cardio-respiratory arrest [Recovered/Resolved]
  - Cardiac failure [Recovering/Resolving]
  - Bradyarrhythmia [Recovered/Resolved with Sequelae]
  - Hypertension [Unknown]
  - Fall [Unknown]
  - Oedema [Unknown]

NARRATIVE: CASE EVENT DATE: 201611
